FAERS Safety Report 21936249 (Version 1)
Quarter: 2023Q1

REPORT INFORMATION
  Report Type: Spontaneous
  Country: US (occurrence: None)
  Receive Date: 20230131
  Receipt Date: 20230131
  Transmission Date: 20230418
  Serious: Yes (Other)
  Sender: FDA-Public Use
  Company Number: None

PATIENT
  Age: 58 Year
  Sex: Female
  Weight: 102.6 kg

DRUGS (2)
  1. PHENTERMINE [Suspect]
     Active Substance: PHENTERMINE
     Indication: Weight decreased
     Dosage: OTHER QUANTITY : 1 TABLET(S);?
     Route: 048
     Dates: start: 20220416, end: 20220420
  2. TOPIRAMATE [Suspect]
     Active Substance: TOPIRAMATE

REACTIONS (11)
  - Fatigue [None]
  - Asthenia [None]
  - Dyspnoea exertional [None]
  - Fatigue [None]
  - Dizziness [None]
  - Therapy cessation [None]
  - Palpitations [None]
  - Nausea [None]
  - Vomiting [None]
  - Gait inability [None]
  - Incorrect dose administered [None]

NARRATIVE: CASE EVENT DATE: 20220423
